FAERS Safety Report 20431507 (Version 1)
Quarter: 2022Q1

REPORT INFORMATION
  Report Type: Spontaneous
  Country: CN (occurrence: CN)
  Receive Date: 20220204
  Receipt Date: 20220204
  Transmission Date: 20220423
  Serious: Yes (Other)
  Sender: FDA-Public Use
  Company Number: CN-PFIZER INC-202200157690

PATIENT
  Age: 69 Year
  Sex: Female
  Weight: 54 kg

DRUGS (2)
  1. CYTARABINE [Suspect]
     Active Substance: CYTARABINE
     Indication: Acute myeloid leukaemia
     Dosage: 1 G, 1X/DAY
     Route: 041
     Dates: start: 20211214, end: 20211218
  2. DEXTROSE [Concomitant]
     Active Substance: DEXTROSE
     Indication: Acute myeloid leukaemia
     Dosage: 250 ML, 1X/DAY
     Route: 041
     Dates: start: 20211214, end: 20211218

REACTIONS (3)
  - Platelet count decreased [Recovering/Resolving]
  - Mouth haemorrhage [Recovering/Resolving]
  - Haemorrhage [Recovering/Resolving]

NARRATIVE: CASE EVENT DATE: 20211220
